FAERS Safety Report 18727231 (Version 10)
Quarter: 2025Q3

REPORT INFORMATION
  Report Type: Spontaneous
  Country: US (occurrence: US)
  Receive Date: 20210111
  Receipt Date: 20250807
  Transmission Date: 20251021
  Serious: Yes (Hospitalization)
  Sender: ROCHE
  Company Number: US-ROCHE-2625306

PATIENT
  Age: 8 Year
  Sex: Male

DRUGS (11)
  1. HEMLIBRA [Suspect]
     Active Substance: EMICIZUMAB-KXWH
     Indication: Factor VII deficiency
     Dosage: STRENGTH: 60 MG/ 0.4 ML
     Route: 058
     Dates: start: 20190122
  2. HEMLIBRA [Suspect]
     Active Substance: EMICIZUMAB-KXWH
     Dosage: STRENGTH: 60 MG/ 0.4 ML
     Route: 058
     Dates: start: 20190117
  3. HEMLIBRA [Suspect]
     Active Substance: EMICIZUMAB-KXWH
     Route: 058
     Dates: start: 20190104
  4. HEMLIBRA [Suspect]
     Active Substance: EMICIZUMAB-KXWH
     Route: 058
     Dates: start: 202107
  5. HEMLIBRA [Suspect]
     Active Substance: EMICIZUMAB-KXWH
     Dosage: FORM STRENGTH : 150MG/ML
     Route: 058
     Dates: start: 201901
  6. HEMLIBRA [Suspect]
     Active Substance: EMICIZUMAB-KXWH
     Dosage: FORM STRENGTH : 150MG/ML
     Route: 058
     Dates: start: 20200319
  7. HEMLIBRA [Suspect]
     Active Substance: EMICIZUMAB-KXWH
     Dosage: FORM STRENGTH : 150MG/ML? FREQUENCY TEXT:/MAR/2022
     Route: 058
  8. HEMLIBRA [Suspect]
     Active Substance: EMICIZUMAB-KXWH
     Dosage: FORM STRENGTH : 60MG/0.4ML
     Route: 058
     Dates: start: 201901
  9. AMINOCAPROIC ACID ORAL SOLUTION [Concomitant]
     Route: 065
  10. AMINOCAPROIC ACID [Concomitant]
     Active Substance: AMINOCAPROIC ACID
  11. ADVATE [Concomitant]
     Active Substance: ANTIHEMOPHILIC FACTOR, HUMAN RECOMBINANT

REACTIONS (4)
  - Epistaxis [Recovered/Resolved]
  - Lacrimal haemorrhage [Recovered/Resolved]
  - Mouth haemorrhage [Recovered/Resolved]
  - Epistaxis [Unknown]

NARRATIVE: CASE EVENT DATE: 20200501
